FAERS Safety Report 13992961 (Version 1)
Quarter: 2017Q3

REPORT INFORMATION
  Report Type: Spontaneous
  Country: US (occurrence: US)
  Receive Date: 20170920
  Receipt Date: 20170920
  Transmission Date: 20171128
  Serious: No
  Sender: FDA-Public Use
  Company Number: US-ASTRAZENECA-2017SE95520

PATIENT
  Sex: Female

DRUGS (3)
  1. PROAIR HFA [Concomitant]
     Active Substance: ALBUTEROL SULFATE
     Dosage: AS REQUIRED
     Route: 065
  2. SYMBICORT [Suspect]
     Active Substance: BUDESONIDE\FORMOTEROL FUMARATE DIHYDRATE
     Route: 055
     Dates: start: 2016, end: 201709
  3. INCRUSE ELLIPTA [Concomitant]
     Active Substance: UMECLIDINIUM BROMIDE
     Dosage: UNKNOWN
     Route: 065
     Dates: start: 2017

REACTIONS (4)
  - Insomnia [Unknown]
  - Off label use [Recovered/Resolved]
  - Product use issue [Recovered/Resolved]
  - Headache [Unknown]

NARRATIVE: CASE EVENT DATE: 2017
